FAERS Safety Report 8119342-1 (Version None)
Quarter: 2012Q1

REPORT INFORMATION
  Report Type: 
  Country: None (occurrence: None)
  Receive Date: 20120207
  Receipt Date: 20120124
  Transmission Date: 20120608
  Serious: Yes (Disabling)
  Sender: FDA-Public Use
  Company Number: GB-MYLANLABS-2012S1002550

PATIENT
  Age: 12 Year
  Sex: Female

DRUGS (3)
  1. ANESTHETICS, GENERAL [Concomitant]
  2. MELPHALAN HYDROCHLORIDE [Suspect]
     Indication: RETINOBLASTOMA
     Route: 013
  3. HEPARIN [Concomitant]

REACTIONS (5)
  - CRANIAL NERVE PARALYSIS [None]
  - RETINOBLASTOMA [None]
  - IIIRD NERVE PARALYSIS [None]
  - ORBITAL OEDEMA [None]
  - EYE EXCISION [None]
